FAERS Safety Report 18942413 (Version 1)
Quarter: 2021Q1

REPORT INFORMATION
  Report Type: Spontaneous
  Country: TR (occurrence: TR)
  Receive Date: 20210225
  Receipt Date: 20210225
  Transmission Date: 20210420
  Serious: Yes (Life-Threatening, Other)
  Sender: FDA-Public Use
  Company Number: TR-PFIZER INC-2021187367

PATIENT
  Age: 17 Year
  Sex: Female

DRUGS (3)
  1. PHENYTOIN SODIUM. [Suspect]
     Active Substance: PHENYTOIN SODIUM
     Indication: SEIZURE
     Dosage: UNK
  2. DIAZEPAM. [Suspect]
     Active Substance: DIAZEPAM
     Indication: SEIZURE
     Dosage: 10 MG (INFUSION)
  3. ISONIAZIDE [Interacting]
     Active Substance: ISONIAZID
     Dosage: UNK
     Route: 048

REACTIONS (2)
  - Drug interaction [Recovered/Resolved]
  - Drug ineffective [Recovered/Resolved]
